FAERS Safety Report 21540292 (Version 2)
Quarter: 2023Q1

REPORT INFORMATION
  Report Type: Report from Study
  Country: US (occurrence: None)
  Receive Date: 20221102
  Receipt Date: 20230308
  Transmission Date: 20230418
  Serious: Yes (Hospitalization, Other)
  Sender: FDA-Public Use
  Company Number: US-ROCHE-3203428

PATIENT
  Age: 62 Year
  Sex: Female
  Weight: 78 kg

DRUGS (3)
  1. ATEZOLIZUMAB [Suspect]
     Active Substance: ATEZOLIZUMAB
     Indication: Small cell lung cancer
     Dosage: LAST DOSE 22/MAR/2022, 19/APR/2022
     Route: 041
     Dates: start: 20220322
  2. CISPLATIN [Suspect]
     Active Substance: CISPLATIN
     Indication: Small cell lung cancer
     Dosage: LAST DOSE 22/MAR/2022
     Route: 042
     Dates: start: 20220322
  3. ETOPOSIDE [Suspect]
     Active Substance: ETOPOSIDE
     Indication: Small cell lung cancer
     Dosage: LAST DOSE 24/MAR/2022
     Route: 042
     Dates: start: 20220322

REACTIONS (2)
  - Odynophagia [Recovering/Resolving]
  - Stoma site infection [Recovered/Resolved]

NARRATIVE: CASE EVENT DATE: 20220409
